FAERS Safety Report 20348290 (Version 1)
Quarter: 2022Q1

REPORT INFORMATION
  Report Type: Spontaneous
  Country: US (occurrence: US)
  Receive Date: 20220119
  Receipt Date: 20220119
  Transmission Date: 20220423
  Serious: No
  Sender: FDA-Public Use
  Company Number: US-BAUSCH-BL-2022-000749

PATIENT
  Age: 72 Year
  Sex: Female

DRUGS (4)
  1. LUMIFY [Suspect]
     Active Substance: BRIMONIDINE TARTRATE
     Indication: Ocular hyperaemia
     Dosage: 1 DROP IN EACH EYE ONCE DAILY AS NEEDED, APPROXIMATELY 6 MONTHS AGO
     Route: 047
     Dates: start: 2021
  2. LUMIFY [Suspect]
     Active Substance: BRIMONIDINE TARTRATE
     Dosage: ONCE DAILY IN THE MORNING, DISCONTINUED LUMIFY APPROXIMATELY 2 WEEKS AGO
     Route: 047
  3. SYSTANE (HYPROMELLOSE 2910 (4000 MPA.S)) [Concomitant]
     Active Substance: HYPROMELLOSE 2910 (4000 MPA.S)
     Indication: Glaucoma
  4. TIMOLOL [Concomitant]
     Active Substance: TIMOLOL
     Indication: Glaucoma

REACTIONS (2)
  - Visual impairment [Recovering/Resolving]
  - Inappropriate schedule of product administration [Unknown]

NARRATIVE: CASE EVENT DATE: 20210101
